FAERS Safety Report 4657974-3 (Version None)
Quarter: 2005Q2

REPORT INFORMATION
  Report Type: 
  Country: None (occurrence: None)
  Receive Date: 20050510
  Receipt Date: 20050418
  Transmission Date: 20051028
  Serious: Yes (Other)
  Sender: FDA-Public Use
  Company Number: PHEH2005US04508

PATIENT
  Age: 63 Year
  Sex: Female
  Weight: 54 kg

DRUGS (11)
  1. ZOMETA [Suspect]
     Indication: BREAST CANCER
     Dosage: 4MG QMO
     Dates: start: 20031015, end: 20050309
  2. NAVELBINE [Concomitant]
     Dates: start: 20040601
  3. GLYBURIDE [Concomitant]
     Indication: DIABETES MELLITUS
  4. HERCEPTIN [Concomitant]
     Indication: BREAST CANCER METASTATIC
     Dosage: 113MG WEEKLY
     Dates: start: 20050413
  5. CARBOCISTEINE [Concomitant]
     Indication: BREAST CANCER METASTATIC
     Dosage: 225 MG WEEKLY
     Dates: start: 20050413
  6. TAXOL [Concomitant]
     Indication: BREAST CANCER METASTATIC
     Dosage: 120MG WEEKLY
     Dates: start: 20050413
  7. ALOXI [Concomitant]
     Dosage: 0.25 UNK
     Dates: start: 20050413
  8. DECA [Concomitant]
     Dosage: 12 UNK
     Dates: start: 20050413
  9. BENADRYL ^PFIZER WARNER-LAMBERT^ [Concomitant]
     Dosage: 25 UNK
     Dates: start: 20050413
  10. TYLENOL (CAPLET) [Concomitant]
     Dosage: 650 UNK
     Dates: start: 20050413
  11. AMANTADINE HCL [Concomitant]
     Dosage: 300 UNK
     Dates: start: 20050413

REACTIONS (17)
  - ARTHROPATHY [None]
  - ASEPTIC NECROSIS BONE [None]
  - BONE EROSION [None]
  - BREAST DISORDER [None]
  - DENTAL PROSTHESIS USER [None]
  - EAR PAIN [None]
  - HAEMORRHAGE [None]
  - MALIGNANT NEOPLASM PROGRESSION [None]
  - NEOPLASM PROGRESSION [None]
  - OEDEMA [None]
  - OSTEONECROSIS [None]
  - PAIN [None]
  - PAIN IN JAW [None]
  - TENDON DISORDER [None]
  - TENDON RUPTURE [None]
  - TOOTH EXTRACTION [None]
  - WOUND DEBRIDEMENT [None]
